FAERS Safety Report 5924042-X (Version None)
Quarter: 2008Q4

REPORT INFORMATION
  Report Type: 
  Country: None (occurrence: None)
  Receive Date: 20081020
  Receipt Date: 20081013
  Transmission Date: 20090506
  Serious: Yes (Hospitalization, Other)
  Sender: FDA-Public Use
  Company Number: PHHY2008NO08331

PATIENT
  Sex: Male

DRUGS (6)
  1. LESCOL [Suspect]
     Indication: BLOOD CHOLESTEROL INCREASED
     Dates: start: 20030401, end: 20070101
  2. LESCOL [Suspect]
     Indication: BLOOD CHOLESTEROL INCREASED
     Dosage: UNK
     Dates: start: 20030401, end: 20070101
  3. ZOCOR [Concomitant]
     Dosage: 80 MG DAILY
     Dates: start: 20070101
  4. ZOCOR [Concomitant]
     Dosage: 160 MG DAILY
  5. EZETROL [Concomitant]
  6. ZYLORIC [Concomitant]

REACTIONS (10)
  - ALVEOLAR AERATION EXCESSIVE [None]
  - COUGH [None]
  - HYPOXIA [None]
  - INTERSTITIAL LUNG DISEASE [None]
  - LUNG DISORDER [None]
  - LUNG INFECTION [None]
  - LUNG INFILTRATION [None]
  - MACROPHAGES INCREASED [None]
  - MALAISE [None]
  - PNEUMONIA LIPOID [None]
